FAERS Safety Report 14354902 (Version 2)
Quarter: 2018Q1

REPORT INFORMATION
  Report Type: Spontaneous
  Country: US (occurrence: US)
  Receive Date: 20180105
  Receipt Date: 20180115
  Transmission Date: 20180509
  Serious: No
  Sender: FDA-Public Use
  Company Number: US-009507513-1801USA001295

PATIENT

DRUGS (1)
  1. ZEPATIER [Suspect]
     Active Substance: ELBASVIR\GRAZOPREVIR
     Indication: HEPATITIS C
     Dosage: 50-100 MG, 1 TABLET BY MOUTH EVERY DAY
     Route: 048
     Dates: start: 201710

REACTIONS (3)
  - Drug dose omission [Unknown]
  - Adverse event [Unknown]
  - Drug effect incomplete [Unknown]

NARRATIVE: CASE EVENT DATE: 2017
